FAERS Safety Report 19905312 (Version 2)
Quarter: 2021Q4

REPORT INFORMATION
  Report Type: Spontaneous
  Country: US (occurrence: US)
  Receive Date: 20211001
  Receipt Date: 20211006
  Transmission Date: 20220303
  Serious: Yes (Hospitalization)
  Sender: FDA-Public Use
  Company Number: US-GILEAD-2021-0550628

PATIENT
  Age: 64 Year
  Sex: Male

DRUGS (13)
  1. VEKLURY [Suspect]
     Active Substance: REMDESIVIR
     Indication: COVID-19
     Route: 065
  2. TOCILIZUMAB [Concomitant]
     Active Substance: TOCILIZUMAB
     Dosage: UNK, ONCE
  3. INTERLEUKIN NOS [Concomitant]
     Active Substance: INTERLEUKIN NOS
  4. HYDROXYCHLOROQUINE [Concomitant]
     Active Substance: HYDROXYCHLOROQUINE
  5. METHYLPREDNISOLONE [Concomitant]
     Active Substance: METHYLPREDNISOLONE
     Dosage: 40 MG
     Route: 042
  6. ASPIRIN [Concomitant]
     Active Substance: ASPIRIN
  7. CLOPIDOGREL [Concomitant]
     Active Substance: CLOPIDOGREL BISULFATE
  8. HEPARIN [Concomitant]
     Active Substance: HEPARIN SODIUM
  9. CEFTRIAXONE [Concomitant]
     Active Substance: CEFTRIAXONE
  10. DOXYCYCLINE [Concomitant]
     Active Substance: DOXYCYCLINE
  11. OXYGEN [Concomitant]
     Active Substance: OXYGEN
  12. PROPOFOL [Concomitant]
     Active Substance: PROPOFOL
  13. DEXMEDETOMIDINE [Concomitant]
     Active Substance: DEXMEDETOMIDINE

REACTIONS (1)
  - Renal impairment [Unknown]
